FAERS Safety Report 18235069 (Version 1)
Quarter: 2020Q3

REPORT INFORMATION
  Report Type: Spontaneous
  Country: FR (occurrence: FR)
  Receive Date: 20200905
  Receipt Date: 20200905
  Transmission Date: 20201103
  Serious: Yes (Hospitalization, Disabling, Other)
  Sender: FDA-Public Use
  Company Number: FR-AUROBINDO-AUR-APL-2020-046394

PATIENT
  Age: 12 Year
  Sex: Male

DRUGS (1)
  1. VALPROIC ACID. [Suspect]
     Active Substance: VALPROIC ACID
     Indication: EPILEPSY
     Dosage: 15000 MILLIGRAM, ONCE A DAY
     Route: 064

REACTIONS (4)
  - Skull malformation [Not Recovered/Not Resolved]
  - Hypotonia neonatal [Recovered/Resolved]
  - Neonatal respiratory distress [Recovered/Resolved]
  - Epilepsy [Not Recovered/Not Resolved]

NARRATIVE: CASE EVENT DATE: 2013
